FAERS Safety Report 8788687 (Version 2)
Quarter: 2013Q4

REPORT INFORMATION
  Report Type: Spontaneous
  Country: US (occurrence: US)
  Receive Date: 20120916
  Receipt Date: 20131101
  Transmission Date: 20140711
  Serious: No
  Sender: FDA-Public Use
  Company Number: US-009507513-1208USA009220

PATIENT
  Age: 55 Year
  Sex: Female

DRUGS (1)
  1. VICTRELIS [Suspect]
     Indication: HEPATITIS C
     Dosage: 800 MG, TID
     Route: 048
     Dates: start: 20120724

REACTIONS (8)
  - Back pain [Unknown]
  - Glossodynia [Unknown]
  - Eating disorder [Unknown]
  - Regurgitation [Unknown]
  - Dyspepsia [Unknown]
  - Vomiting [Unknown]
  - Anaemia [Unknown]
  - Fatigue [Unknown]
